FAERS Safety Report 7920624-4 (Version None)
Quarter: 2011Q4

REPORT INFORMATION
  Report Type: 
  Country: None (occurrence: None)
  Receive Date: 20111117
  Receipt Date: 20111115
  Transmission Date: 20120403
  Serious: Yes (Other)
  Sender: FDA-Public Use
  Company Number: PHEH2011US009527

PATIENT
  Age: 59 Year
  Sex: Female

DRUGS (1)
  1. TOBI [Suspect]
     Dosage: 1 DF, QD,  FOR 28 DAYS ON THEN OFF FOR 28 DAYS
     Dates: start: 20090904

REACTIONS (1)
  - UPPER RESPIRATORY TRACT INFECTION [None]
